FAERS Safety Report 6791077-7 (Version None)
Quarter: 2010Q2

REPORT INFORMATION
  Report Type: 
  Country: None (occurrence: None)
  Receive Date: 20100624
  Receipt Date: 20100614
  Transmission Date: 20101027
  Serious: Yes (Life-Threatening, Hospitalization)
  Sender: FDA-Public Use
  Company Number: DE-SANOFI-AVENTIS-2010SA034098

PATIENT
  Age: 59 Year
  Sex: Female

DRUGS (5)
  1. DESMOPRESSIN ACETATE [Suspect]
     Indication: VON WILLEBRAND'S DISEASE
     Route: 042
     Dates: start: 20100304, end: 20100304
  2. DESMOPRESSIN ACETATE [Suspect]
     Indication: DENTAL IMPLANTATION
     Route: 042
     Dates: start: 20100304, end: 20100304
  3. BLOPRESS PLUS [Concomitant]
     Indication: HYPERTENSION
  4. CYCLOKAPRON [Concomitant]
  5. ANTIBIOTICS [Concomitant]
     Dates: start: 20100304

REACTIONS (3)
  - BRAIN OEDEMA [None]
  - HYPOKALAEMIA [None]
  - HYPONATRAEMIA [None]
